FAERS Safety Report 8542200-5 (Version None)
Quarter: 2012Q3

REPORT INFORMATION
  Report Type: 
  Country: None (occurrence: None)
  Receive Date: 20120726
  Receipt Date: 20111010
  Transmission Date: 20120928
  Serious: No
  Sender: FDA-Public Use
  Company Number: US-ASTRAZENECA-2011SE60845

PATIENT
  Age: 40 Year
  Sex: Female
  Weight: 65.8 kg

DRUGS (2)
  1. SEROQUEL [Suspect]
     Route: 048
     Dates: start: 20111007
  2. SEROQUEL [Suspect]
     Indication: BIPOLAR DISORDER
     Route: 048

REACTIONS (9)
  - DRUG INTOLERANCE [None]
  - ASTHENIA [None]
  - ADVERSE EVENT [None]
  - HALLUCINATION [None]
  - ADVERSE DRUG REACTION [None]
  - HALLUCINATION, AUDITORY [None]
  - SOMNOLENCE [None]
  - THERAPEUTIC RESPONSE INCREASED [None]
  - FEELING ABNORMAL [None]
